FAERS Safety Report 20129690 (Version 2)
Quarter: 2021Q4

REPORT INFORMATION
  Report Type: Spontaneous
  Country: IT (occurrence: IT)
  Receive Date: 20211130
  Receipt Date: 20211210
  Transmission Date: 20220303
  Serious: Yes (Hospitalization, Other)
  Sender: FDA-Public Use
  Company Number: IT-Accord-246149

PATIENT
  Age: 20 Year
  Sex: Male

DRUGS (4)
  1. TACROLIMUS [Suspect]
     Active Substance: TACROLIMUS
     Indication: Focal segmental glomerulosclerosis
     Dosage: MAINTAINING SERUM RANGE OF 4-6 NG/DL?0.1 MG/KG/DAY IN TWO DOSES
  2. PREDNISONE [Concomitant]
     Active Substance: PREDNISONE
     Indication: Dermatitis
     Dosage: 30MG DAILY
  3. CANAKINUMAB [Concomitant]
     Active Substance: CANAKINUMAB
     Indication: PSTPIP1-associated myeloid-related proteinaemia inflammatory syndrome
     Dosage: DOSE OF 150 MG MONTHLY
  4. ALLOPURINOL [Concomitant]
     Active Substance: ALLOPURINOL

REACTIONS (1)
  - Kidney fibrosis [Unknown]
